FAERS Safety Report 7687992-2 (Version None)
Quarter: 2011Q3

REPORT INFORMATION
  Report Type: 
  Country: None (occurrence: None)
  Receive Date: 20110816
  Receipt Date: 20110816
  Transmission Date: 20111222
  Serious: Yes (Hospitalization, Other)
  Sender: FDA-Public Use
  Company Number: None

PATIENT
  Age: 38 Year
  Sex: Male
  Weight: 69.5 kg

DRUGS (2)
  1. PAROXETINE HCL [Suspect]
     Indication: DEPRESSION
     Dosage: 2 MG EVERY DAY PO
     Route: 048
     Dates: start: 20110222, end: 20110506
  2. MIRTAZAPINE [Suspect]
     Indication: DEPRESSION
     Dosage: MG PO
     Route: 048
     Dates: start: 20110412, end: 20110506

REACTIONS (2)
  - HYPERTENSION [None]
  - MOOD SWINGS [None]
